FAERS Safety Report 22199636 (Version 1)
Quarter: 2023Q2

REPORT INFORMATION
  Report Type: Spontaneous
  Country: US (occurrence: US)
  Receive Date: 20230412
  Receipt Date: 20230412
  Transmission Date: 20230721
  Serious: No
  Sender: FDA-Public Use
  Company Number: US-GBT-021496

PATIENT
  Age: 52 Year
  Sex: Male

DRUGS (3)
  1. OXBRYTA [Suspect]
     Active Substance: VOXELOTOR
     Indication: Sickle cell disease
     Route: 048
     Dates: start: 202104
  2. IBUPROFEN [Concomitant]
     Active Substance: IBUPROFEN
     Indication: Product used for unknown indication
     Route: 065
  3. METHOCARBAMOL [Concomitant]
     Active Substance: METHOCARBAMOL
     Indication: Product used for unknown indication
     Route: 065

REACTIONS (1)
  - Sickle cell anaemia with crisis [Unknown]

NARRATIVE: CASE EVENT DATE: 20230324
